FAERS Safety Report 18932645 (Version 1)
Quarter: 2021Q1

REPORT INFORMATION
  Report Type: Report from Study
  Country: US (occurrence: US)
  Receive Date: 20210224
  Receipt Date: 20210224
  Transmission Date: 20210420
  Serious: No
  Sender: FDA-Public Use
  Company Number: NVSC2021US036663

PATIENT
  Sex: Male
  Weight: 27 kg

DRUGS (1)
  1. ILARIS [Suspect]
     Active Substance: CANAKINUMAB
     Indication: PYREXIA
     Dosage: 100 MG, OTHER (EVERY 4 WEEKS)
     Route: 058
     Dates: start: 20201114

REACTIONS (1)
  - Biopsy tongue [Not Recovered/Not Resolved]
